FAERS Safety Report 24383108 (Version 1)
Quarter: 2024Q3

REPORT INFORMATION
  Report Type: Spontaneous
  Country: US (occurrence: None)
  Receive Date: 20240930
  Receipt Date: 20240930
  Transmission Date: 20241017
  Serious: Yes (Hospitalization)
  Sender: Public
  Company Number: None

PATIENT
  Sex: Female

DRUGS (4)
  1. NUCALA [Suspect]
     Active Substance: MEPOLIZUMAB
     Indication: Asthma
     Dosage: OTHER FREQUENCY : 28 DAYS;?
     Dates: start: 20240820
  2. ALBUTEROL AER HFA [Concomitant]
  3. NITROGLYCERN SUB 0.3MG [Concomitant]
  4. SYMBICORT AER 160-4.5 [Concomitant]

REACTIONS (1)
  - Impaired quality of life [None]
